FAERS Safety Report 8366678-5 (Version None)
Quarter: 2012Q2

REPORT INFORMATION
  Report Type: 
  Country: None (occurrence: None)
  Receive Date: 20120517
  Receipt Date: 20120516
  Transmission Date: 20120825
  Serious: Yes (Death, Other)
  Sender: FDA-Public Use
  Company Number: CA-ROCHE-610881

PATIENT
  Sex: Female
  Weight: 42 kg

DRUGS (4)
  1. ACTONEL [Concomitant]
     Indication: OSTEOPOROSIS
     Route: 048
  2. METOPROLOL TARTRATE [Concomitant]
     Indication: HYPERTENSION
     Route: 048
  3. AMOXICILLIN [Concomitant]
     Route: 048
  4. TAMIFLU [Suspect]
     Indication: ANTIVIRAL PROPHYLAXIS
     Route: 048
     Dates: start: 20080324, end: 20080403

REACTIONS (3)
  - DECREASED APPETITE [None]
  - PNEUMONIA [None]
  - PULMONARY CONGESTION [None]
